FAERS Safety Report 8358593 (Version 5)
Quarter: 2012Q4

REPORT INFORMATION
  Report Type: Report from Study
  Country: JP (occurrence: JP)
  Receive Date: 20120127
  Receipt Date: 20121017
  Transmission Date: 20130627
  Serious: Yes (Life-Threatening)
  Sender: FDA-Public Use
  Company Number: JP-GLAXOSMITHKLINE-B0776531A

PATIENT
  Age: 2 None
  Sex: Male
  Weight: 11 kg

DRUGS (35)
  1. REVOLADE [Suspect]
     Indication: IDIOPATHIC THROMBOCYTOPENIC PURPURA
     Route: 048
     Dates: start: 20110531, end: 20110801
  2. REVOLADE [Suspect]
     Indication: IDIOPATHIC THROMBOCYTOPENIC PURPURA
     Route: 048
     Dates: start: 20110802
  3. PREDNISOLONE [Concomitant]
     Indication: IDIOPATHIC THROMBOCYTOPENIC PURPURA
     Route: 048
     Dates: end: 20110704
  4. PREDNISOLONE [Concomitant]
     Indication: IDIOPATHIC THROMBOCYTOPENIC PURPURA
     Route: 048
     Dates: start: 20110705, end: 20110718
  5. PREDNISOLONE [Concomitant]
     Indication: IDIOPATHIC THROMBOCYTOPENIC PURPURA
     Route: 048
     Dates: start: 20110719, end: 20110811
  6. PREDNISOLONE [Concomitant]
     Indication: IDIOPATHIC THROMBOCYTOPENIC PURPURA
     Route: 048
     Dates: start: 20110812, end: 20110815
  7. PREDNISOLONE [Concomitant]
     Indication: IDIOPATHIC THROMBOCYTOPENIC PURPURA
     Route: 048
     Dates: start: 20110816, end: 20110819
  8. PREDNISOLONE [Concomitant]
     Indication: IDIOPATHIC THROMBOCYTOPENIC PURPURA
     Route: 048
     Dates: start: 20110820, end: 20110822
  9. PREDNISOLONE [Concomitant]
     Indication: IDIOPATHIC THROMBOCYTOPENIC PURPURA
     Route: 048
     Dates: start: 20110823, end: 20110905
  10. PREDNISOLONE [Concomitant]
     Indication: IDIOPATHIC THROMBOCYTOPENIC PURPURA
     Route: 048
     Dates: start: 20110906, end: 20110919
  11. PREDNISOLONE [Concomitant]
     Indication: IDIOPATHIC THROMBOCYTOPENIC PURPURA
     Route: 048
     Dates: start: 20110920, end: 20111029
  12. PREDNISOLONE [Concomitant]
     Indication: IDIOPATHIC THROMBOCYTOPENIC PURPURA
     Route: 048
     Dates: start: 20111104, end: 20111107
  13. PREDNISOLONE [Concomitant]
     Indication: IDIOPATHIC THROMBOCYTOPENIC PURPURA
     Route: 048
     Dates: start: 20111108, end: 20111221
  14. HUMAN NORMAL IMMUNOGLOBULIN [Concomitant]
     Indication: IDIOPATHIC THROMBOCYTOPENIC PURPURA
     Route: 042
     Dates: start: 20110812, end: 20110813
  15. HUMAN NORMAL IMMUNOGLOBULIN [Concomitant]
     Indication: IDIOPATHIC THROMBOCYTOPENIC PURPURA
     Route: 042
     Dates: start: 20111129, end: 20111129
  16. HUMAN NORMAL IMMUNOGLOBULIN [Concomitant]
     Indication: IDIOPATHIC THROMBOCYTOPENIC PURPURA
     Route: 042
     Dates: start: 20120114, end: 20120114
  17. ACICLOVIR [Concomitant]
     Indication: VIITH NERVE PARALYSIS
     Route: 065
     Dates: start: 20111030, end: 20111110
  18. PREDONINE [Concomitant]
     Indication: IDIOPATHIC THROMBOCYTOPENIC PURPURA
     Dates: start: 20111030, end: 20111101
  19. PREDONINE [Concomitant]
     Indication: IDIOPATHIC THROMBOCYTOPENIC PURPURA
     Dates: start: 20111222, end: 20111228
  20. PREDONINE [Concomitant]
     Indication: IDIOPATHIC THROMBOCYTOPENIC PURPURA
     Dates: start: 20111229, end: 20120104
  21. PREDONINE [Concomitant]
     Indication: IDIOPATHIC THROMBOCYTOPENIC PURPURA
     Dates: start: 20120105, end: 20120111
  22. PREDONINE [Concomitant]
     Indication: IDIOPATHIC THROMBOCYTOPENIC PURPURA
     Dates: start: 20120112, end: 20120118
  23. LEPETAN [Concomitant]
     Indication: ANALGESIC THERAPY
     Dates: start: 20111230, end: 20120104
  24. BAKTAR [Concomitant]
     Indication: INFECTION PROPHYLAXIS
     Dosage: 1G Per day
     Route: 048
     Dates: start: 20120110, end: 20120110
  25. RANDA [Concomitant]
     Route: 042
     Dates: start: 20120111, end: 20120115
  26. RANDA [Concomitant]
     Route: 042
     Dates: start: 20120207, end: 20120211
  27. RANDA [Concomitant]
     Route: 042
     Dates: start: 20120403, end: 20120407
  28. RANDA [Concomitant]
     Route: 042
     Dates: start: 20120501, end: 20120505
  29. UROMITEXAN [Concomitant]
     Dates: start: 20111111, end: 20111111
  30. UROMITEXAN [Concomitant]
     Dates: start: 20120207, end: 20120208
  31. UROMITEXAN [Concomitant]
     Dates: start: 20120403, end: 20120404
  32. UROMITEXAN [Concomitant]
     Dates: start: 20120501, end: 20120502
  33. ETOPOSIDE [Concomitant]
     Route: 042
     Dates: start: 20120607, end: 20120610
  34. CARBOPLATIN [Concomitant]
     Route: 042
     Dates: start: 20120607, end: 20120610
  35. SANDOSTATIN [Concomitant]
     Dates: start: 20120613

REACTIONS (1)
  - Neuroblastoma [Recovered/Resolved]
